FAERS Safety Report 4805937-7 (Version None)
Quarter: 2005Q4

REPORT INFORMATION
  Report Type: 
  Country: None (occurrence: None)
  Receive Date: 20051021
  Receipt Date: 20051014
  Transmission Date: 20060501
  Serious: Yes (Hospitalization)
  Sender: FDA-Public Use
  Company Number: 2005SE05832

PATIENT
  Age: 18327 Day
  Sex: Male
  Weight: 82 kg

DRUGS (1)
  1. BLOPRESS PLUS [Suspect]
     Indication: HYPERTENSION
     Dosage: CANDESARTAN CILEXETIL 16 MG, HYDROCHLOROTHIAZIDE 12,5 MG
     Route: 048

REACTIONS (2)
  - CHOLESTASIS [None]
  - HEPATITIS ACUTE [None]
